FAERS Safety Report 6197456-3 (Version None)
Quarter: 2009Q2

REPORT INFORMATION
  Report Type: 
  Country: None (occurrence: None)
  Receive Date: 20090521
  Receipt Date: 20090430
  Transmission Date: 20091009
  Serious: No
  Sender: FDA-Public Use
  Company Number: US-TEVA-187475USA

PATIENT
  Sex: Female

DRUGS (5)
  1. AZILECT [Suspect]
     Indication: PARKINSON'S DISEASE
     Dosage: TAKES ONLY 1/2 TABLET IN THE MORNING
     Route: 048
     Dates: end: 20090210
  2. SINEMET [Concomitant]
     Dosage: 25/100 MG CONTROLLED RELEASE
     Route: 048
  3. SINEMET [Concomitant]
     Dosage: 25/100 MG, 1 TAB, EVERY 2 HRS. AS NEEDED
     Route: 048
  4. CLONAZEPAM [Concomitant]
     Dosage: TAKES TWO IN AM, ONE BEFORE DINNER, 1 AFTER
     Route: 048
  5. ATENOLOL [Concomitant]
     Dosage: 1/2 TABLET
     Route: 048

REACTIONS (1)
  - HYPERTHYROIDISM [None]
